FAERS Safety Report 10263090 (Version 1)
Quarter: 2014Q2

REPORT INFORMATION
  Report Type: Spontaneous
  Country: US (occurrence: US)
  Receive Date: 20140626
  Receipt Date: 20140626
  Transmission Date: 20141212
  Serious: Yes (Other)
  Sender: FDA-Public Use
  Company Number: US-BAYER-2014-094691

PATIENT
  Age: 62 Year
  Sex: Male

DRUGS (6)
  1. XOFIGO [Suspect]
     Indication: PROSTATE CANCER METASTATIC
     Dosage: DOSE REGIMEN: 50 KBQ/KG
     Route: 042
  2. XOFIGO [Suspect]
     Indication: PROSTATE CANCER METASTATIC
     Dosage: DOSE REGIMEN: 50 KBQ/KG
     Route: 042
  3. XOFIGO [Suspect]
     Indication: PROSTATE CANCER METASTATIC
     Dosage: DOSE REGIMEN: 50 KBQ/KG
     Route: 042
  4. XOFIGO [Suspect]
     Indication: PROSTATE CANCER METASTATIC
     Dosage: DOSE REGIMEN: 50 KBQ/KG
     Route: 042
  5. XOFIGO [Suspect]
     Indication: PROSTATE CANCER METASTATIC
     Dosage: DOSE REGIMEN: 50 KBQ/KG
     Route: 042
  6. XOFIGO [Suspect]
     Indication: PROSTATE CANCER METASTATIC
     Dosage: DOSE REGIMEN: 50 KBQ/KG
     Route: 042

REACTIONS (3)
  - Dermatitis [Recovered/Resolved]
  - Petechiae [Recovered/Resolved]
  - International normalised ratio increased [Recovered/Resolved]
